FAERS Safety Report 7832686-3 (Version None)
Quarter: 2011Q4

REPORT INFORMATION
  Report Type: 
  Country: None (occurrence: None)
  Receive Date: 20111024
  Receipt Date: 20111013
  Transmission Date: 20120403
  Serious: No
  Sender: FDA-Public Use
  Company Number: US-BIOGENIDEC-2011BI039196

PATIENT
  Age: 58 Year
  Sex: Female

DRUGS (1)
  1. TYSABRI [Suspect]
     Indication: MULTIPLE SCLEROSIS
     Route: 042
     Dates: start: 20070908

REACTIONS (5)
  - BURNING SENSATION [None]
  - INSOMNIA [None]
  - BALANCE DISORDER [None]
  - PAIN OF SKIN [None]
  - HEADACHE [None]
